FAERS Safety Report 7518986-5 (Version None)
Quarter: 2011Q2

REPORT INFORMATION
  Report Type: 
  Country: None (occurrence: None)
  Receive Date: 20110602
  Receipt Date: 20110506
  Transmission Date: 20111010
  Serious: Yes (Hospitalization)
  Sender: FDA-Public Use
  Company Number: SE-DENTSPLY-2011-0042-EUR

PATIENT
  Sex: Male

DRUGS (7)
  1. TROMBYL [Concomitant]
  2. AVANDIA [Concomitant]
  3. ENALAPRIL MALEATE [Concomitant]
  4. INSULATARD [Concomitant]
  5. METFORMIN ACTAVIS [Concomitant]
  6. XYLOCAINE [Suspect]
     Indication: TOOTH EXTRACTION
     Route: 004
     Dates: start: 20110322, end: 20110322
  7. PLENDIL [Concomitant]

REACTIONS (1)
  - MYOCARDIAL INFARCTION [None]
